FAERS Safety Report 5773639-9 (Version None)
Quarter: 2008Q2

REPORT INFORMATION
  Report Type: 
  Country: None (occurrence: None)
  Receive Date: 20080616
  Receipt Date: 20080605
  Transmission Date: 20081010
  Serious: Yes (Hospitalization, Other)
  Sender: FDA-Public Use
  Company Number: NL-JNJFOC-20080402659

PATIENT
  Sex: Female

DRUGS (6)
  1. DURAGESIC-100 [Suspect]
     Route: 062
  2. DURAGESIC-100 [Suspect]
     Route: 062
  3. DURAGESIC-100 [Suspect]
     Dosage: 75UG/HR PATCH PLUS 12.5UG/HR PATCH
     Route: 062
  4. DURAGESIC-100 [Suspect]
     Indication: DRUG USE FOR UNKNOWN INDICATION
     Route: 062
  5. DIAZEPAM [Concomitant]
  6. BUPRENORPHINE HCL [Concomitant]
     Route: 062

REACTIONS (4)
  - ABSCESS [None]
  - MUSCLE SPASMS [None]
  - MYALGIA [None]
  - WEIGHT DECREASED [None]
